FAERS Safety Report 8803847 (Version 1)
Quarter: 2012Q4

REPORT INFORMATION
  Report Type: 
  Country: US (occurrence: US)
  Receive Date: 20120924
  Receipt Date: 20120924
  Transmission Date: 20130627
  Serious: No
  Sender: FDA-Public Use
  Company Number: US-PFIZER INC-2012234913

PATIENT
  Age: 65 Year
  Sex: Male
  Weight: 75.74 kg

DRUGS (6)
  1. CHANTIX [Suspect]
     Indication: SMOKING CESSATION THERAPY
     Dosage: UNK
     Dates: start: 20120808, end: 201208
  2. CHANTIX [Suspect]
     Dosage: 0.5 mg, UNK
     Dates: start: 201208
  3. PRAVASTATIN [Concomitant]
     Indication: BLOOD CHOLESTEROL ABNORMAL
     Dosage: 40 mg, daily
  4. COLCHICINE [Concomitant]
     Indication: ARTHROPATHY
     Dosage: 6mg, daily
  5. TRIAMTERENE [Concomitant]
     Indication: HYPERTENSION
     Dosage: 37.5 mg,daily
  6. ASPIRIN [Concomitant]
     Dosage: UNK

REACTIONS (1)
  - Pollakiuria [Not Recovered/Not Resolved]
